FAERS Safety Report 16394410 (Version 4)
Quarter: 2019Q3

REPORT INFORMATION
  Report Type: Report from Study
  Country: US (occurrence: US)
  Receive Date: 20190605
  Receipt Date: 20190715
  Transmission Date: 20191004
  Serious: Yes (Other)
  Sender: FDA-Public Use
  Company Number: US-JNJFOC-20190602889

PATIENT
  Sex: Female

DRUGS (16)
  1. TRIAMCINOLONE [Concomitant]
     Active Substance: TRIAMCINOLONE
  2. LINEZOLID. [Concomitant]
     Active Substance: LINEZOLID
  3. PREDNISONE. [Concomitant]
     Active Substance: PREDNISONE
  4. SULAR [Concomitant]
     Active Substance: NISOLDIPINE
  5. PROPRANOLOL HYDROCHLORIDE. [Concomitant]
     Active Substance: PROPRANOLOL HYDROCHLORIDE
  6. IMBRUVICA [Suspect]
     Active Substance: IBRUTINIB
     Route: 048
     Dates: start: 20190518
  7. BACTRIM DS [Concomitant]
     Active Substance: SULFAMETHOXAZOLE\TRIMETHOPRIM
  8. TAMOXIFEN CITRATE. [Concomitant]
     Active Substance: TAMOXIFEN CITRATE
  9. LACTOBACILLUS [Concomitant]
     Active Substance: LACTOBACILLUS ACIDOPHILUS
  10. LORAZEPAM. [Concomitant]
     Active Substance: LORAZEPAM
  11. IMBRUVICA [Suspect]
     Active Substance: IBRUTINIB
     Indication: MANTLE CELL LYMPHOMA
     Route: 048
     Dates: start: 20171109, end: 20180518
  12. IMBRUVICA [Suspect]
     Active Substance: IBRUTINIB
     Indication: MANTLE CELL LYMPHOMA
     Route: 048
     Dates: start: 20180519
  13. MELATONIN [Concomitant]
     Active Substance: MELATONIN
  14. VITAMIN D3 [Concomitant]
     Active Substance: CHOLECALCIFEROL
  15. IMBRUVICA [Suspect]
     Active Substance: IBRUTINIB
     Route: 048
     Dates: end: 20180517
  16. SULFAMETHOXAZOLE W/TRIMETHOPRIM [Concomitant]
     Active Substance: SULFAMETHOXAZOLE\TRIMETHOPRIM

REACTIONS (12)
  - Lymphoedema [Unknown]
  - Carpal tunnel syndrome [Unknown]
  - Cyst [Unknown]
  - Contusion [Unknown]
  - Peripheral swelling [Unknown]
  - Pulmonary mass [Recovered/Resolved]
  - Post procedural contusion [Unknown]
  - Medical device site bruise [Unknown]
  - Capillary disorder [Unknown]
  - Nodule [Recovered/Resolved]
  - Sarcoma [Unknown]
  - Blood pressure increased [Unknown]
